FAERS Safety Report 21960735 (Version 1)
Quarter: 2023Q1

REPORT INFORMATION
  Report Type: Spontaneous
  Country: US (occurrence: US)
  Receive Date: 20230207
  Receipt Date: 20230207
  Transmission Date: 20230417
  Serious: No
  Sender: FDA-Public Use
  Company Number: US-ENDO PHARMACEUTICALS INC-2022-006215

PATIENT
  Age: 69 Year
  Sex: Male
  Weight: 101.13 kg

DRUGS (2)
  1. FORTESTA [Suspect]
     Active Substance: TESTOSTERONE
     Indication: Blood testosterone decreased
     Dosage: 2 DF (TWO PUMPS), UNKNOWN
     Route: 061
  2. BLODD THINNER [Concomitant]
     Indication: Atrial fibrillation
     Dosage: UNK UNKNOWN, OD
     Route: 065

REACTIONS (1)
  - Blood testosterone increased [Unknown]

NARRATIVE: CASE EVENT DATE: 20221001
